FAERS Safety Report 4833298-6 (Version None)
Quarter: 2005Q4

REPORT INFORMATION
  Report Type: 
  Country: None (occurrence: None)
  Receive Date: 20051117
  Receipt Date: 20051105
  Transmission Date: 20060501
  Serious: Yes (Other)
  Sender: FDA-Public Use
  Company Number: 2005152231

PATIENT
  Age: 28 Year
  Sex: Male
  Weight: 117.9352 kg

DRUGS (2)
  1. ROLAIDS [Suspect]
     Indication: ACCIDENTAL EXPOSURE
     Dosage: APPROX 50 TABLETS ONCE, ORAL
     Route: 048
     Dates: start: 20051105, end: 20051105
  2. PHENOBARBITAL TAB [Concomitant]

REACTIONS (3)
  - ACCIDENTAL DRUG INTAKE BY CHILD [None]
  - ACCIDENTAL OVERDOSE [None]
  - DIARRHOEA [None]
